FAERS Safety Report 10776841 (Version 1)
Quarter: 2015Q1

REPORT INFORMATION
  Report Type: Spontaneous
  Country: HU (occurrence: HU)
  Receive Date: 20150209
  Receipt Date: 20150209
  Transmission Date: 20150721
  Serious: Yes (Other)
  Sender: FDA-Public Use
  Company Number: HU-SA-2015SA013162

PATIENT
  Age: 42 Year
  Weight: 53 kg

DRUGS (2)
  1. ARAVA [Suspect]
     Active Substance: LEFLUNOMIDE
     Indication: RHEUMATOID ARTHRITIS
     Route: 048
     Dates: start: 20130320, end: 20141112
  2. HUMIRA [Suspect]
     Active Substance: ADALIMUMAB
     Indication: RHEUMATOID ARTHRITIS
     Route: 058
     Dates: start: 20140327, end: 20141112

REACTIONS (2)
  - Renal failure [Recovered/Resolved]
  - Haemangioma of liver [Unknown]

NARRATIVE: CASE EVENT DATE: 20141112
